FAERS Safety Report 23936663 (Version 1)
Quarter: 2024Q2

REPORT INFORMATION
  Report Type: Spontaneous
  Country: TR (occurrence: TR)
  Receive Date: 20240604
  Receipt Date: 20240604
  Transmission Date: 20240716
  Serious: Yes (Other)
  Sender: FDA-Public Use
  Company Number: TR-002147023-NVSC2024TR114977

PATIENT
  Age: 78 Year
  Sex: Female

DRUGS (1)
  1. EXELON [Suspect]
     Active Substance: RIVASTIGMINE TARTRATE
     Indication: Parkinson^s disease
     Dosage: UNK (TRANSDERMAL FLASTER)
     Route: 065

REACTIONS (5)
  - Memory impairment [Unknown]
  - Parkinson^s disease [Unknown]
  - Hallucination [Unknown]
  - Hypokinesia [Unknown]
  - Product supply issue [Unknown]
